FAERS Safety Report 10047810 (Version 1)
Quarter: 2014Q1

REPORT INFORMATION
  Report Type: Spontaneous
  Country: US (occurrence: None)
  Receive Date: 20140306
  Receipt Date: 20140306
  Transmission Date: 20141002
  Serious: Yes (Other)
  Sender: FDA-Public Use
  Company Number: 163-21880-13070926

PATIENT
  Age: 50 Year
  Sex: Male
  Weight: 83.92 kg

DRUGS (2)
  1. REVLIMID [Suspect]
     Indication: PLASMA CELL MYELOMA
     Route: 048
     Dates: start: 200812
  2. DEXAMETHASONE (DEXAMETHSON) [Concomitant]

REACTIONS (4)
  - Blood creatine increased [None]
  - Blood urea increased [None]
  - Constipation [None]
  - Diarrhoea [None]
